FAERS Safety Report 18864866 (Version 18)
Quarter: 2022Q3

REPORT INFORMATION
  Report Type: Report from Study
  Country: GB (occurrence: GB)
  Receive Date: 20210208
  Receipt Date: 20220706
  Transmission Date: 20221026
  Serious: Yes (Hospitalization, Other)
  Sender: FDA-Public Use
  Company Number: None

PATIENT
  Age: 43 Year
  Sex: Female

DRUGS (103)
  1. BENZYDAMINE [Suspect]
     Active Substance: BENZYDAMINE
     Indication: Mucosal inflammation
     Dosage: LIQUID MOUTHWASH 15 ML/CM3
     Route: 048
  2. BENZYDAMINE [Suspect]
     Active Substance: BENZYDAMINE
     Dosage: (15 ML/CM3, LIQUID MOUTHWASH;)
     Route: 048
  3. DOCETAXEL [Suspect]
     Active Substance: DOCETAXEL
     Indication: Breast cancer metastatic
     Dosage: 130 MILLIGRAM, Q3W (130 MG, Q3W)
     Route: 042
     Dates: start: 20150709, end: 20150709
  4. DOCETAXEL [Suspect]
     Active Substance: DOCETAXEL
     Dosage: 130 MILLIGRAM, Q3W (130 MG, Q3W)
     Route: 042
     Dates: start: 20150616, end: 20150616
  5. DOCETAXEL [Suspect]
     Active Substance: DOCETAXEL
     Dosage: 130 MILLIGRAM, Q3W (130 MG, Q3W)
     Route: 042
     Dates: start: 20150616, end: 20150709
  6. DOCETAXEL [Suspect]
     Active Substance: DOCETAXEL
     Dosage: 260 MILLIGRAM, Q3W
     Route: 042
     Dates: start: 20150616, end: 20150709
  7. DOCETAXEL [Suspect]
     Active Substance: DOCETAXEL
     Dosage: 260 MILLIGRAM, Q3W
     Route: 042
     Dates: start: 20150616
  8. DOCETAXEL [Suspect]
     Active Substance: DOCETAXEL
     Dosage: 260 MILLIGRAM, Q3W
     Route: 042
  9. DOCETAXEL [Suspect]
     Active Substance: DOCETAXEL
     Dosage: 130 MILLIGRAM, Q3W, 130 MG, QOW, 130 MG, BIW (130 MG, Q3W)
     Route: 042
     Dates: start: 20150709, end: 20150709
  10. DOCETAXEL [Suspect]
     Active Substance: DOCETAXEL
     Dosage: 260 MILLIGRAM, QW, 260 MG, 1/WEEK (130 MILLIGRAM)
     Route: 041
     Dates: start: 20150616, end: 20150709
  11. DOCETAXEL [Suspect]
     Active Substance: DOCETAXEL
     Dosage: 260 MILLIGRAM, QW, 130 MG, BIW (130 MG, Q3W)
     Route: 042
     Dates: start: 20150709, end: 20150709
  12. DOCETAXEL [Suspect]
     Active Substance: DOCETAXEL
     Dosage: 780 MILLIGRAM, QW
     Route: 042
  13. DOCETAXEL [Suspect]
     Active Substance: DOCETAXEL
     Dosage: UNK, QW
     Route: 041
     Dates: start: 20150709, end: 20150709
  14. DOCETAXEL [Suspect]
     Active Substance: DOCETAXEL
     Dosage: 130 MILLIGRAM, QD
     Route: 042
     Dates: start: 20150709, end: 20150709
  15. DOCETAXEL [Suspect]
     Active Substance: DOCETAXEL
     Dosage: 130 MILLIGRAM
     Route: 042
     Dates: start: 20150616, end: 20150616
  16. DOCETAXEL [Suspect]
     Active Substance: DOCETAXEL
     Dosage: 390 MILLIGRAM, QW, 390 MG, 1/WEEK (130 MILLIGRAM)
     Route: 041
     Dates: start: 20150709, end: 20150709
  17. DOCETAXEL [Suspect]
     Active Substance: DOCETAXEL
     Dosage: 130 MILLIGRAM, Q2W
     Route: 042
     Dates: start: 20150709, end: 20150709
  18. DOCETAXEL [Suspect]
     Active Substance: DOCETAXEL
     Dosage: 130 MILLIGRAM, 130 MG, QOW, 130 MG, BIW (130 MG, Q3W)
     Route: 042
     Dates: start: 20150709, end: 20150709
  19. PACLITAXEL [Suspect]
     Active Substance: PACLITAXEL
     Indication: Breast cancer metastatic
     Dosage: 840 MILLIGRAM, TOTAL (LOADING DOSE)
     Route: 042
     Dates: start: 20150615, end: 20150615
  20. PACLITAXEL [Suspect]
     Active Substance: PACLITAXEL
     Dosage: 450 MILLIGRAM, Q2W (LOADING DOSE (450 MG) )
     Route: 042
     Dates: start: 20150730, end: 20150730
  21. PACLITAXEL [Suspect]
     Active Substance: PACLITAXEL
     Dosage: 340 MILLIGRAM, Q3W (340 MG,Q3W)
     Route: 042
     Dates: start: 20151022, end: 20151022
  22. PACLITAXEL [Suspect]
     Active Substance: PACLITAXEL
     Dosage: 567 MILLIGRAM, TOTAL
     Route: 042
     Dates: start: 20150616, end: 20150616
  23. PACLITAXEL [Suspect]
     Active Substance: PACLITAXEL
     Dosage: 420 MILLIGRAM, Q3W, MAINTENANCE DOSE
     Route: 042
     Dates: start: 20150709, end: 20150709
  24. PACLITAXEL [Suspect]
     Active Substance: PACLITAXEL
     Dosage: 450 MILLIGRAM, Q2W (450 MG, BIW (450 MG, Q3W) )
     Route: 042
     Dates: start: 20150820, end: 20150820
  25. PACLITAXEL [Suspect]
     Active Substance: PACLITAXEL
     Dosage: 340 MILLIGRAM, Q3W (LOADING DOSE  )
     Route: 042
     Dates: start: 20150820, end: 20150820
  26. PACLITAXEL [Suspect]
     Active Substance: PACLITAXEL
     Dosage: 340 MILLIGRAM, Q3W
     Route: 042
     Dates: start: 20150730, end: 20150730
  27. PACLITAXEL [Suspect]
     Active Substance: PACLITAXEL
     Dosage: 450 MILLIGRAM, Q3W (450 MG,3 (450 MG) )
     Route: 042
     Dates: start: 20150730, end: 20150730
  28. PACLITAXEL [Suspect]
     Active Substance: PACLITAXEL
     Dosage: 340 MILLIGRAM, Q3W (340 MG,Q3W)
     Route: 042
     Dates: start: 20150910, end: 20150910
  29. PACLITAXEL [Suspect]
     Active Substance: PACLITAXEL
     Dosage: 340 MILLIGRAM, Q3W EVERY 3 WEEKS LOADING DOSE
     Route: 042
     Dates: start: 20151022, end: 20151022
  30. PACLITAXEL [Suspect]
     Active Substance: PACLITAXEL
     Dosage: 1350 MILLIGRAM, QW (450 MG, QW3 (LOADING DOSE) )
     Route: 042
     Dates: start: 20150730, end: 20150730
  31. PACLITAXEL [Suspect]
     Active Substance: PACLITAXEL
     Dosage: 450 MILLIGRAM, Q3W (450 MG,Q3W)
     Route: 042
     Dates: start: 20150820, end: 20150820
  32. PACLITAXEL [Suspect]
     Active Substance: PACLITAXEL
     Dosage: 450 MILLIGRAM, Q3W (450 MG,Q3W)
     Route: 042
     Dates: start: 20150616, end: 20150616
  33. PACLITAXEL [Suspect]
     Active Substance: PACLITAXEL
     Dosage: 420 MILLIGRAM, Q3W
     Route: 042
     Dates: start: 20150709, end: 20150709
  34. PACLITAXEL [Suspect]
     Active Substance: PACLITAXEL
     Dosage: 340 MILLIGRAM, Q3W
     Route: 042
     Dates: start: 20150910, end: 20151022
  35. PACLITAXEL [Suspect]
     Active Substance: PACLITAXEL
     Dosage: 320 MILLIGRAM, Q3W, 340 MG,Q3W
     Route: 042
     Dates: start: 20150709, end: 20150709
  36. PACLITAXEL [Suspect]
     Active Substance: PACLITAXEL
     Dosage: 450 MILLIGRAM, Q3W (450 MG,Q3W)
     Route: 042
     Dates: start: 20150730, end: 20150820
  37. PACLITAXEL [Suspect]
     Active Substance: PACLITAXEL
     Dosage: 340 MILLIGRAM, Q3W (340 MG,Q3W)
     Route: 042
     Dates: start: 20150609, end: 20150609
  38. PACLITAXEL [Suspect]
     Active Substance: PACLITAXEL
     Dosage: 450 MILLIGRAM, Q3W (450 MG,Q3W)
     Route: 042
     Dates: start: 20150709
  39. PACLITAXEL [Suspect]
     Active Substance: PACLITAXEL
     Dosage: 1701 MILLIGRAM, QW
     Route: 041
     Dates: start: 20150616, end: 20150616
  40. PACLITAXEL [Suspect]
     Active Substance: PACLITAXEL
     Dosage: 1020 MILLIGRAM, QW
     Route: 042
     Dates: start: 20150730, end: 20150820
  41. PACLITAXEL [Suspect]
     Active Substance: PACLITAXEL
     Dosage: 2520 MILLIGRAM, QW, 2520 MG, 1/WEEK
     Route: 041
     Dates: start: 20150615, end: 20150615
  42. PACLITAXEL [Suspect]
     Active Substance: PACLITAXEL
     Dosage: 1020 MILLIGRAM, QW, 1020 MG, 1/WEEK (340 MILLIGRAM
     Route: 041
     Dates: start: 20150730, end: 20150730
  43. PACLITAXEL [Suspect]
     Active Substance: PACLITAXEL
     Dosage: 10 MILLIGRAM, QD, 10 MG, QD
     Route: 041
     Dates: start: 20150907, end: 20150907
  44. PACLITAXEL [Suspect]
     Active Substance: PACLITAXEL
     Dosage: 390 MILLIGRAM, QW
     Route: 041
     Dates: start: 20160709, end: 20160709
  45. PACLITAXEL [Suspect]
     Active Substance: PACLITAXEL
     Dosage: 420 MILLIGRAM, Q3W, 420 MG, Q3W
     Route: 042
     Dates: start: 20150609, end: 20150609
  46. PACLITAXEL [Suspect]
     Active Substance: PACLITAXEL
     Dosage: 1020 MILLIGRAM, QW, 1020 MG, 1/WEEK
     Route: 041
     Dates: start: 20150910, end: 20150910
  47. PACLITAXEL [Suspect]
     Active Substance: PACLITAXEL
     Dosage: 340 MILLIGRAM, Q3W
     Route: 042
     Dates: start: 20150709, end: 20150709
  48. PACLITAXEL [Suspect]
     Active Substance: PACLITAXEL
     Dosage: 340 MILLIGRAM, Q3W
     Route: 042
     Dates: start: 20151022
  49. PACLITAXEL [Suspect]
     Active Substance: PACLITAXEL
     Dosage: 1020 MILLIGRAM, QW, LOADING DOSE 450 MG FROM 30-JUL-2015 TO
     Route: 042
     Dates: start: 20150910, end: 20151022
  50. PACLITAXEL [Suspect]
     Active Substance: PACLITAXEL
     Dosage: 340 MILLIGRAM, Q3W
     Route: 042
     Dates: start: 20150910
  51. PACLITAXEL [Suspect]
     Active Substance: PACLITAXEL
     Dosage: 1020 MILLIGRAM, QW, 1020 MG, 1/WEEK
     Route: 041
     Dates: start: 20151022, end: 20151022
  52. PACLITAXEL [Suspect]
     Active Substance: PACLITAXEL
     Dosage: 340 MILLIGRAM, Q3W, 340 MG, Q3W
     Route: 042
     Dates: start: 20150609, end: 20150609
  53. PACLITAXEL [Suspect]
     Active Substance: PACLITAXEL
     Dosage: 1020 MILLIGRAM, QW
     Route: 041
     Dates: start: 20150820, end: 20150820
  54. PACLITAXEL [Suspect]
     Active Substance: PACLITAXEL
     Dosage: 421 MILLIGRAM, Q3W
     Route: 042
     Dates: start: 20150609, end: 20150609
  55. PACLITAXEL [Suspect]
     Active Substance: PACLITAXEL
     Dosage: 1350 MILLIGRAM, Q3W
     Route: 042
     Dates: start: 20150730, end: 20150730
  56. LOPERAMIDE [Suspect]
     Active Substance: LOPERAMIDE
     Indication: Diarrhoea
     Dosage: 2 MILLIGRAM, PRN (AS NEEDED )
     Route: 048
  57. TRASTUZUMAB [Suspect]
     Active Substance: TRASTUZUMAB
     Indication: Breast cancer metastatic
     Dosage: 567 MILLIGRAM, QD LOADING DOSE  IN TOTAL
     Route: 041
     Dates: start: 20150616, end: 20150616
  58. TRASTUZUMAB [Suspect]
     Active Substance: TRASTUZUMAB
     Dosage: 420 MILLIGRAM, 3XW (420 MG, TIW (MAINTAINANCE DOSE) )
     Route: 042
     Dates: start: 20150709, end: 20150709
  59. TRASTUZUMAB [Suspect]
     Active Substance: TRASTUZUMAB
     Dosage: 420 MILLIGRAM, QOW
     Route: 042
     Dates: start: 20150709, end: 20150709
  60. TRASTUZUMAB [Suspect]
     Active Substance: TRASTUZUMAB
     Dosage: 567 MILLIGRAM (567 MG (LOADING DOSE) (TOTAL))
     Route: 041
     Dates: start: 20150616, end: 20150616
  61. TRASTUZUMAB [Suspect]
     Active Substance: TRASTUZUMAB
     Dosage: 420 MILLIGRAM (420MG (MAINTAINANCE DOSE.) )
     Route: 042
     Dates: start: 20150709, end: 20150709
  62. TRASTUZUMAB [Suspect]
     Active Substance: TRASTUZUMAB
     Dosage: 420 MILLIGRAM, Q3W (420 MG, Q3W (MAINTENANCE DOSE)  )
     Route: 042
     Dates: start: 20150709
  63. TRASTUZUMAB [Suspect]
     Active Substance: TRASTUZUMAB
     Dosage: 1260 MILLIGRAM, QW, 1260 MG, 1/WEEK (420 MILLIGRAM)
     Route: 041
     Dates: start: 20150609
  64. TRASTUZUMAB [Suspect]
     Active Substance: TRASTUZUMAB
     Dosage: UNK, 356
     Route: 065
  65. TRASTUZUMAB [Suspect]
     Active Substance: TRASTUZUMAB
     Dosage: 1260 MILLIGRAM, QW
     Route: 041
     Dates: start: 20150709, end: 20150709
  66. TRASTUZUMAB [Suspect]
     Active Substance: TRASTUZUMAB
     Dosage: 420 MILLIGRAM
     Route: 065
     Dates: start: 20150709
  67. TRASTUZUMAB [Suspect]
     Active Substance: TRASTUZUMAB
     Dosage: 1701 MILLIGRAM, QW, 567 MG, 3/WEEK
     Route: 041
     Dates: start: 20150616
  68. TRASTUZUMAB [Suspect]
     Active Substance: TRASTUZUMAB
     Dosage: 420 MILLIGRAM, Q3W
     Route: 042
     Dates: start: 20150709, end: 20150709
  69. TRASTUZUMAB [Suspect]
     Active Substance: TRASTUZUMAB
     Dosage: 1260 MILLIGRAM, QW, 420 MG, TIW
     Route: 042
     Dates: start: 20150709, end: 20150709
  70. HERCEPTIN [Suspect]
     Active Substance: TRASTUZUMAB
     Indication: Breast cancer metastatic
     Dosage: 567 MILLIGRAM, QD (567 MG, QD)
     Route: 042
     Dates: start: 20150616, end: 20150616
  71. HERCEPTIN [Suspect]
     Active Substance: TRASTUZUMAB
     Dosage: 420 MILLIGRAM, Q3W (420 MG, Q3W)
     Route: 042
     Dates: start: 20150709, end: 20150709
  72. HERCEPTIN [Suspect]
     Active Substance: TRASTUZUMAB
     Dosage: 420 MILLIGRAM, Q3W (420 MG, Q3W)
     Route: 042
     Dates: start: 20150709
  73. HERCEPTIN [Suspect]
     Active Substance: TRASTUZUMAB
     Dosage: 420 MILLIGRAM, Q2W (420 MG, BIW (420 MG, Q3W) )
     Route: 042
     Dates: start: 20150709, end: 20150709
  74. PERTUZUMAB [Suspect]
     Active Substance: PERTUZUMAB
     Indication: Breast cancer metastatic
     Dosage: 840 MILLIGRAM, QD (LOADING DOSE )
     Route: 042
     Dates: start: 20150615, end: 20150615
  75. PERTUZUMAB [Suspect]
     Active Substance: PERTUZUMAB
     Dosage: 567 MILLIGRAM, Q3W (567 MG (LOADING DOSE) (TOTAL) )
     Route: 041
     Dates: start: 20150616, end: 20150616
  76. PERTUZUMAB [Suspect]
     Active Substance: PERTUZUMAB
     Dosage: 420 MILLIGRAM, Q2W
     Route: 042
     Dates: start: 20150709, end: 20150709
  77. PERTUZUMAB [Suspect]
     Active Substance: PERTUZUMAB
     Dosage: 840 MILLIGRAM, Q3W
     Route: 042
     Dates: start: 20150615, end: 20150615
  78. PERTUZUMAB [Suspect]
     Active Substance: PERTUZUMAB
     Dosage: 420 MILLIGRAM, QW
     Dates: start: 20150615, end: 20150615
  79. PERTUZUMAB [Suspect]
     Active Substance: PERTUZUMAB
     Dosage: 10 MILLIGRAM, QD
     Route: 041
     Dates: start: 20150907
  80. PERTUZUMAB [Suspect]
     Active Substance: PERTUZUMAB
     Dosage: 567 MILLIGRAM, QW
     Route: 041
     Dates: start: 20150616, end: 20150616
  81. PERTUZUMAB [Suspect]
     Active Substance: PERTUZUMAB
     Dosage: 420 MILLIGRAM, Q3W (420 MG, Q3W (MAINTAINANCE DOSE) )
     Route: 042
     Dates: start: 20150709
  82. PERTUZUMAB [Suspect]
     Active Substance: PERTUZUMAB
     Dosage: 567 MILLIGRAM, TOTAL
     Route: 041
     Dates: start: 20150616
  83. PERTUZUMAB [Suspect]
     Active Substance: PERTUZUMAB
     Dosage: 420 MILLIGRAM, QW, 420 MG, 1/WEEK
     Route: 041
     Dates: start: 20150709, end: 20150709
  84. PERTUZUMAB [Suspect]
     Active Substance: PERTUZUMAB
     Dosage: 2520 MILLIGRAM, QW
     Route: 042
     Dates: start: 20150615, end: 20150615
  85. PERTUZUMAB [Suspect]
     Active Substance: PERTUZUMAB
     Dosage: 1350 MILLIGRAM, Q3W, 1350 MILLIGRAM, QWK
     Route: 042
     Dates: start: 20150730, end: 20150730
  86. PERTUZUMAB [Suspect]
     Active Substance: PERTUZUMAB
     Dosage: 420 MILLIGRAM, Q2W
     Route: 042
     Dates: start: 20150709
  87. PERTUZUMAB [Suspect]
     Active Substance: PERTUZUMAB
     Dosage: 1260 MILLIGRAM, QW
     Route: 042
     Dates: start: 20150709
  88. IMODIUM [Suspect]
     Active Substance: LOPERAMIDE HYDROCHLORIDE
     Indication: Diarrhoea
     Dosage: 2 MILLIGRAM, PRN (AS NECESSARY  )
     Route: 048
  89. METFORMIN [Concomitant]
     Active Substance: METFORMIN HYDROCHLORIDE
     Indication: Diabetes mellitus
     Dosage: 1 GRAM, QD (1 G,QD)
     Route: 048
  90. METFORMIN [Concomitant]
     Active Substance: METFORMIN HYDROCHLORIDE
     Dosage: 2 GRAM, QD (2 G, QD)
     Route: 048
  91. CHLORPHENIRAMINE MALEATE [Concomitant]
     Active Substance: CHLORPHENIRAMINE MALEATE
     Indication: Product used for unknown indication
     Dosage: 10 MILLIGRAM
     Route: 042
     Dates: start: 20150709, end: 20150709
  92. HYDROCORTISONE [Concomitant]
     Active Substance: HYDROCORTISONE
     Indication: Product used for unknown indication
     Dosage: 100 MILLIGRAM, 100 MG, 1X; IN TOTAL
     Route: 042
     Dates: start: 20150709, end: 20150709
  93. HYDROCORTISONE [Concomitant]
     Active Substance: HYDROCORTISONE
     Dosage: 100 MILLIGRAM, QD
     Route: 041
     Dates: start: 20150709, end: 20150709
  94. DOMPERIDONE [Concomitant]
     Active Substance: DOMPERIDONE
     Indication: Product used for unknown indication
     Dosage: 10 MILLIGRAM, QD (10 MG,QD  )
     Route: 048
     Dates: start: 20150709
  95. DOMPERIDONE [Concomitant]
     Active Substance: DOMPERIDONE
     Dosage: 10 MILLIGRAM, QD (30 MG,QD)
     Route: 048
     Dates: start: 20190709
  96. DOMPERIDONE [Concomitant]
     Active Substance: DOMPERIDONE
     Dosage: 30 MILLIGRAM, QD
     Route: 048
     Dates: start: 20180709
  97. DOMPERIDONE [Concomitant]
     Active Substance: DOMPERIDONE
     Dosage: 30 MILLIGRAM, QD
     Route: 048
     Dates: start: 20190709
  98. TRAMADOL [Concomitant]
     Active Substance: TRAMADOL
     Indication: Pain
     Dosage: 50 MILLIGRAM, QD  (50 MG,QD)
     Route: 048
  99. TRAMADOL [Concomitant]
     Active Substance: TRAMADOL
     Dosage: 100 MILLIGRAM, QD, (100 MG, QD)
     Route: 048
  100. COCODAMOL [Concomitant]
     Active Substance: ACETAMINOPHEN\CODEINE PHOSPHATE
     Indication: Product used for unknown indication
     Dosage: 500 MILLIGRAM, QD (500 MG, QD)
     Route: 048
  101. COCODAMOL [Concomitant]
     Active Substance: ACETAMINOPHEN\CODEINE PHOSPHATE
     Dosage: 2000 MILLIGRAM, QD
     Route: 048
  102. AMOXICILLIN\CLAVULANATE POTASSIUM [Concomitant]
     Active Substance: AMOXICILLIN\CLAVULANATE POTASSIUM
     Indication: Cough
     Dosage: COUGH WITH YELLOW SPUTUM, START 10-JAN-2018
     Route: 048
     Dates: start: 20180110, end: 20180117
  103. AMOXICILLIN\CLAVULANATE POTASSIUM [Concomitant]
     Active Substance: AMOXICILLIN\CLAVULANATE POTASSIUM
     Dosage: COUGH WITH YELLOW SPUTUM, START 10-JUL-2018
     Dates: end: 20180717

REACTIONS (10)
  - Febrile neutropenia [Recovered/Resolved]
  - Neuropathy peripheral [Not Recovered/Not Resolved]
  - Swelling [Not Recovered/Not Resolved]
  - Chest pain [Not Recovered/Not Resolved]
  - Mucosal inflammation [Recovered/Resolved]
  - Diarrhoea [Recovered/Resolved]
  - Nausea [Not Recovered/Not Resolved]
  - Bone pain [Not Recovered/Not Resolved]
  - Fatigue [Recovered/Resolved]
  - Vomiting [Not Recovered/Not Resolved]

NARRATIVE: CASE EVENT DATE: 20150908
